FAERS Safety Report 4547175-1 (Version None)
Quarter: 2005Q1

REPORT INFORMATION
  Report Type: 
  Country: None (occurrence: None)
  Receive Date: 20050107
  Receipt Date: 20041229
  Transmission Date: 20050727
  Serious: Yes (Other)
  Sender: FDA-Public Use
  Company Number: 200419863US

PATIENT
  Sex: Male

DRUGS (4)
  1. LOVENOX [Suspect]
     Dosage: DOSE: 40MG/0.4ML
     Dates: start: 20041215, end: 20041215
  2. PLAVIX [Concomitant]
     Dosage: DOSE: NOT PROVIDED
  3. ASPIRIN [Concomitant]
  4. LOPRESSOR [Concomitant]
     Indication: HYPERTENSION
     Dosage: DOSE: NOT PROVIDED

REACTIONS (4)
  - AMNESIA [None]
  - DIFFICULTY IN WALKING [None]
  - DISORIENTATION [None]
  - VICTIM OF CRIME [None]
